FAERS Safety Report 6152537-5 (Version None)
Quarter: 2009Q2

REPORT INFORMATION
  Report Type: 
  Country: None (occurrence: None)
  Receive Date: 20090413
  Receipt Date: 20090408
  Transmission Date: 20091009
  Serious: Yes (Other)
  Sender: FDA-Public Use
  Company Number: DE-BAYER-200913535GPV

PATIENT
  Age: 41 Year
  Sex: Male
  Weight: 85 kg

DRUGS (4)
  1. AVELOX [Suspect]
     Indication: PNEUMONIA
     Route: 065
     Dates: start: 20080101, end: 20080101
  2. AVELOX [Suspect]
     Route: 065
     Dates: start: 20070101, end: 20070101
  3. CEFADROXIL [Concomitant]
     Indication: PNEUMONIA
     Route: 065
  4. CORTISON [Concomitant]
     Indication: PNEUMONIA
     Route: 065

REACTIONS (7)
  - ARTHRALGIA [None]
  - MUSCULAR WEAKNESS [None]
  - MYALGIA [None]
  - NERVOUS SYSTEM DISORDER [None]
  - PARAESTHESIA [None]
  - TENDON DISORDER [None]
  - TENDON PAIN [None]
